FAERS Safety Report 4426320-2 (Version None)
Quarter: 2004Q3

REPORT INFORMATION
  Report Type: 
  Country: None (occurrence: None)
  Receive Date: 20040810
  Receipt Date: 20040726
  Transmission Date: 20050211
  Serious: Yes (Hospitalization)
  Sender: FDA-Public Use
  Company Number: 104893ISR

PATIENT
  Age: 38 Year
  Sex: Female

DRUGS (7)
  1. ETOPOPHOS PRESERVATIVE FREE [Suspect]
     Dosage: 600 MILLIGRAM, INTRAVENOUS NOS
     Route: 042
     Dates: start: 20040402, end: 20040403
  2. CYCLOPHOSPHAMIDE [Suspect]
     Dosage: 5400 MILLIGRAM, INTRAVEOUS NOS
     Route: 042
     Dates: start: 20040402, end: 20040403
  3. MESNA [Suspect]
     Dosage: 5400 MILLIGRAM, INTRAVENOUS NOS
     Route: 042
     Dates: start: 20040402, end: 20040403
  4. DIGOXIN [Concomitant]
  5. FLUCONAZOLE [Concomitant]
  6. VALACYCLOVIR HCL [Concomitant]
  7. CLORAZEPATE DIPOTASSIUM [Concomitant]

REACTIONS (5)
  - CHEST DISCOMFORT [None]
  - DRUG HYPERSENSITIVITY [None]
  - HEADACHE [None]
  - PAIN IN JAW [None]
  - SENSE OF OPPRESSION [None]
